FAERS Safety Report 5977658-9 (Version None)
Quarter: 2008Q4

REPORT INFORMATION
  Report Type: 
  Country: None (occurrence: None)
  Receive Date: 20081203
  Receipt Date: 20081126
  Transmission Date: 20090506
  Serious: Yes (Other)
  Sender: FDA-Public Use
  Company Number: BR-ASTRAZENECA-2008UW26606

PATIENT
  Age: 53 Year
  Sex: Male
  Weight: 90 kg

DRUGS (3)
  1. TENORETIC 100 [Suspect]
     Indication: HYPERTENSION
     Route: 048
     Dates: start: 19980101
  2. ALCYTAN [Concomitant]
     Indication: DEPRESSION
     Route: 048
  3. NASAL SPRAY [Concomitant]
     Indication: NASAL DECONGESTION THERAPY
     Route: 050

REACTIONS (1)
  - CHEST PAIN [None]
